FAERS Safety Report 14941122 (Version 1)
Quarter: 2018Q2

REPORT INFORMATION
  Report Type: Spontaneous
  Country: US (occurrence: US)
  Receive Date: 20180525
  Receipt Date: 20180525
  Transmission Date: 20180711
  Serious: No
  Sender: FDA-Public Use
  Company Number: US-009507513-1805USA009690

PATIENT
  Sex: Male

DRUGS (1)
  1. JANUVIA [Suspect]
     Active Substance: SITAGLIPTIN PHOSPHATE
     Dosage: 100 MG (1 TABLET), ONCE DAILY
     Route: 048

REACTIONS (3)
  - Poor quality drug administered [Unknown]
  - No adverse event [Unknown]
  - Product physical issue [Unknown]
